FAERS Safety Report 10481902 (Version 2)
Quarter: 2014Q4

REPORT INFORMATION
  Report Type: Report from Study
  Country: US (occurrence: US)
  Receive Date: 20140929
  Receipt Date: 20141110
  Transmission Date: 20150528
  Serious: Yes (Death, Hospitalization)
  Sender: FDA-Public Use
  Company Number: PHEH2014US019273

PATIENT
  Age: 74 Year
  Sex: Female
  Weight: 58.96 kg

DRUGS (1)
  1. GLEEVEC [Suspect]
     Active Substance: IMATINIB MESYLATE
     Indication: CHRONIC MYELOID LEUKAEMIA
     Dosage: 100 MG, FOUR TIMES A DAY
     Route: 048

REACTIONS (6)
  - Oxygen saturation increased [Unknown]
  - Oncologic complication [Fatal]
  - Cardiac failure congestive [Fatal]
  - Fall [Unknown]
  - Renal disorder [Fatal]
  - Haemoglobin decreased [Unknown]

NARRATIVE: CASE EVENT DATE: 20140903
